FAERS Safety Report 9204383 (Version 1)
Quarter: 2013Q2

REPORT INFORMATION
  Report Type: Spontaneous
  Country: US (occurrence: US)
  Receive Date: 20130402
  Receipt Date: 20130402
  Transmission Date: 20140414
  Serious: Yes (Other)
  Sender: FDA-Public Use
  Company Number: US-CELGENEUS-163-21880-13033292

PATIENT
  Sex: 0

DRUGS (8)
  1. REVLIMID [Suspect]
     Indication: CHRONIC LYMPHOCYTIC LEUKAEMIA
     Dosage: 5 MILLIGRAM
     Route: 048
  2. REVLIMID [Suspect]
     Dosage: 10 MILLIGRAM
     Route: 048
  3. REVLIMID [Suspect]
     Dosage: 5 MILLIGRAM
     Route: 048
  4. REVLIMID [Suspect]
     Dosage: 5 MILLIGRAM
     Route: 048
  5. PENTOSTATIN [Suspect]
     Indication: CHRONIC LYMPHOCYTIC LEUKAEMIA
     Dosage: 2 MILLIGRAM/SQ. METER
     Route: 065
  6. CYCLOPHOSPHAMIDE [Suspect]
     Indication: CHRONIC LYMPHOCYTIC LEUKAEMIA
     Dosage: 600 MILLIGRAM/SQ. METER
     Route: 065
  7. RITUXIMAB [Suspect]
     Indication: CHRONIC LYMPHOCYTIC LEUKAEMIA
     Dosage: 100 MILLIGRAM
     Route: 065
  8. RITUXIMAB [Suspect]
     Dosage: 375 MILLIGRAM/SQ. METER
     Route: 041

REACTIONS (7)
  - Autoimmune disorder [Unknown]
  - Neutropenia [Unknown]
  - Leukopenia [Unknown]
  - Myalgia [Unknown]
  - Rash [Unknown]
  - Fatigue [Unknown]
  - Dyspnoea [Unknown]
